FAERS Safety Report 4401093-8 (Version None)
Quarter: 2004Q3

REPORT INFORMATION
  Report Type: 
  Country: None (occurrence: None)
  Receive Date: 20040907
  Receipt Date: 20031027
  Transmission Date: 20050211
  Serious: Yes (Other)
  Sender: FDA-Public Use
  Company Number: US-BRISTOL-MYERS SQUIBB COMPANY-12420113

PATIENT
  Age: 78 Year
  Sex: Female
  Weight: 51 kg

DRUGS (10)
  1. COUMADIN [Suspect]
     Indication: ATRIAL FIBRILLATION
     Dosage: PRESENT DOSE: ORAL 2.5 MG EVERY OTHER DAY. INTERRUPTED ON 21-OCT-2003
     Route: 048
     Dates: start: 20000526
  2. LASIX [Concomitant]
  3. SPIRONOLACTONE [Concomitant]
  4. LANOXIN [Concomitant]
  5. VITAMIN B COMPLEX CAP [Concomitant]
  6. VITAMIN E [Concomitant]
  7. VITAMIN C [Concomitant]
  8. CALCIUM [Concomitant]
  9. ZINC [Concomitant]
  10. SELENIUM TRACE METAL ADDITIVE [Concomitant]

REACTIONS (9)
  - ARTHRALGIA [None]
  - CHILLS [None]
  - DYSPNOEA [None]
  - HEADACHE [None]
  - PROTHROMBIN TIME PROLONGED [None]
  - PRURITUS [None]
  - PYREXIA [None]
  - RASH [None]
  - REACTION TO COLOURING [None]
